FAERS Safety Report 7659974-8 (Version None)
Quarter: 2011Q3

REPORT INFORMATION
  Report Type: 
  Country: None (occurrence: None)
  Receive Date: 20110805
  Receipt Date: 20110726
  Transmission Date: 20111222
  Serious: Yes (Other)
  Sender: FDA-Public Use
  Company Number: GB-BRISTOL-MYERS SQUIBB COMPANY-15924335

PATIENT
  Age: 13 Year
  Sex: Male

DRUGS (8)
  1. RIFAMPICIN [Suspect]
     Indication: TUBERCULOSIS
  2. NEVIRAPINE [Suspect]
     Indication: ANTIRETROVIRAL THERAPY
  3. ABACAVIR [Suspect]
     Indication: ANTIRETROVIRAL THERAPY
  4. PYRAZINAMIDE [Suspect]
     Indication: TUBERCULOSIS
  5. PREDNISOLONE [Concomitant]
  6. ETHAMBUTOL HYDROCHLORIDE [Suspect]
     Indication: TUBERCULOSIS
  7. ISONIAZID [Suspect]
     Indication: TUBERCULOSIS
  8. EFAVIRENZ [Suspect]
     Indication: ANTIRETROVIRAL THERAPY

REACTIONS (1)
  - HIV ASSOCIATED NEPHROPATHY [None]
